FAERS Safety Report 15066413 (Version 2)
Quarter: 2018Q3

REPORT INFORMATION
  Report Type: Report from Study
  Country: JP (occurrence: JP)
  Receive Date: 20180626
  Receipt Date: 20180903
  Transmission Date: 20181010
  Serious: Yes (Death, Life-Threatening, Hospitalization, Other)
  Sender: FDA-Public Use
  Company Number: JP-ACTELION-A-CH2018-174278

PATIENT
  Age: 37 Year
  Sex: Female

DRUGS (26)
  1. LIPIDIL [Concomitant]
     Active Substance: FENOFIBRATE
  2. BIOFERMIN R [Concomitant]
     Active Substance: BACILLUS SUBTILIS\LACTOBACILLUS ACIDOPHILUS\STREPTOCOCCUS FAECAIS
  3. CAMOSTAT MESILATE [Concomitant]
     Active Substance: CAMOSTAT MESYLATE
  4. DAIPHEN [Concomitant]
     Active Substance: SULFAMETHOXAZOLE\TRIMETHOPRIM
  5. ADCIRCA [Concomitant]
     Active Substance: TADALAFIL
  6. TAKECAB [Concomitant]
     Active Substance: VONOPRAZAN FUMURATE
  7. OXYCODONE [Concomitant]
     Active Substance: OXYCODONE
  8. NEXIUM [Concomitant]
     Active Substance: ESOMEPRAZOLE MAGNESIUM
  9. DECADRON [Concomitant]
     Active Substance: DEXAMETHASONE
  10. VALACICLOVIR [Concomitant]
     Active Substance: VALACYCLOVIR HYDROCHLORIDE
  11. BISOPROLOL FUMERATE [Concomitant]
     Active Substance: BISOPROLOL FUMARATE
  12. ASPARA POTASSIUM [Concomitant]
     Active Substance: POTASSIUM ASPARTATE
  13. OPSUMIT [Suspect]
     Active Substance: MACITENTAN
     Dosage: 10 MG, QD
     Route: 048
     Dates: start: 20170124, end: 20170222
  14. CLEANAL [Concomitant]
     Active Substance: FUDOSTEINE
  15. LIVERES [Concomitant]
  16. OXINORM [Concomitant]
  17. OPSUMIT [Suspect]
     Active Substance: MACITENTAN
     Indication: PULMONARY ARTERIAL HYPERTENSION
     Dosage: 10 MG, QD
     Route: 048
     Dates: start: 20170112, end: 20170122
  18. ESTAZOLAM. [Concomitant]
     Active Substance: ESTAZOLAM
  19. SOLDEM 1 [Concomitant]
     Active Substance: DEXTROSE\SODIUM CHLORIDE\SODIUM LACTATE
  20. SYCREST [Concomitant]
     Active Substance: ASENAPINE MALEATE
  21. FEBURIC [Concomitant]
     Active Substance: FEBUXOSTAT
  22. AZOSEMIDE [Concomitant]
     Active Substance: AZOSEMIDE
  23. DEXART [Concomitant]
     Active Substance: DEXAMETHASONE SODIUM PHOSPHATE
  24. OPSUMIT [Suspect]
     Active Substance: MACITENTAN
     Dosage: 10 MG, QD
     Route: 048
     Dates: start: 20170224, end: 20171209
  25. TIAPRIDE [Concomitant]
     Active Substance: TIAPRIDE
  26. OXYGEN. [Concomitant]
     Active Substance: OXYGEN

REACTIONS (17)
  - Insomnia [Not Recovered/Not Resolved]
  - Cardiac arrest [Fatal]
  - Anxiety [Not Recovered/Not Resolved]
  - Dyspnoea [Not Recovered/Not Resolved]
  - Pleural effusion [Recovering/Resolving]
  - Pulmonary hypertension [Fatal]
  - Depressed level of consciousness [Fatal]
  - Cardiomegaly [Recovering/Resolving]
  - Headache [Recovering/Resolving]
  - Respiratory arrest [Fatal]
  - Pyrexia [Recovering/Resolving]
  - Collagen disorder [Fatal]
  - Concomitant disease aggravated [Fatal]
  - Cough [Recovering/Resolving]
  - Oedema [Not Recovered/Not Resolved]
  - Weight increased [Not Recovered/Not Resolved]
  - Pneumonia [Recovering/Resolving]

NARRATIVE: CASE EVENT DATE: 20170513
